FAERS Safety Report 13205775 (Version 1)
Quarter: 2017Q1

REPORT INFORMATION
  Report Type: Not Available
  Country: CH (occurrence: CH)
  Receive Date: 20170209
  Receipt Date: 20170209
  Transmission Date: 20170428
  Serious: Yes (Hospitalization, Other)
  Sender: FDA-Public Use
  Company Number: CH-PURDUE-GBR-2017-0043246

PATIENT
  Age: 81 Year
  Sex: Female
  Weight: 74 kg

DRUGS (7)
  1. TARGIN [Suspect]
     Active Substance: NALOXONE HYDROCHLORIDE\OXYCODONE HYDROCHLORIDE
     Indication: ANALGESIC THERAPY
     Dosage: 5/2.5 MG BID
     Route: 048
     Dates: start: 2016, end: 201610
  2. DEROXAT [Interacting]
     Active Substance: PAROXETINE HYDROCHLORIDE
     Indication: MENTAL DISORDER
     Dosage: 20 MG, DAILY
     Route: 048
     Dates: end: 20161007
  3. PANTOZOL [Concomitant]
     Active Substance: PANTOPRAZOLE SODIUM
     Dosage: 20 MG, DAILY [STRENGTH 20 MG]
     Route: 048
  4. CRESTOR [Concomitant]
     Active Substance: ROSUVASTATIN CALCIUM
     Dosage: 10 MG, DAILY
     Route: 048
  5. TRITTICO [Interacting]
     Active Substance: TRAZODONE HYDROCHLORIDE
     Indication: MENTAL DISORDER
     Dosage: 225 MG, DAILY [STRENGTH 100 MG AND 50 MG]
     Route: 048
     Dates: end: 201610
  6. ATACAND PLUS [Concomitant]
     Active Substance: CANDESARTAN CILEXETIL\HYDROCHLOROTHIAZIDE
     Dosage: 8/12.5 MG DAILY
     Route: 048
     Dates: end: 201610
  7. TORASEMIDE SANDOZ [Concomitant]
     Active Substance: TORSEMIDE
     Dosage: 10 MG DAILY
     Route: 048
     Dates: end: 201610

REACTIONS (3)
  - Confusional state [Recovering/Resolving]
  - Drug interaction [Unknown]
  - Agitation [Recovering/Resolving]

NARRATIVE: CASE EVENT DATE: 20160930
